FAERS Safety Report 24099529 (Version 3)
Quarter: 2024Q3

REPORT INFORMATION
  Report Type: Report from Study
  Country: CH (occurrence: CH)
  Receive Date: 20240716
  Receipt Date: 20240731
  Transmission Date: 20241016
  Serious: Yes (Other)
  Sender: ABBVIE
  Company Number: CH-ABBVIE-5731240

PATIENT
  Sex: Male

DRUGS (3)
  1. CARBIDOPA\LEVODOPA [Suspect]
     Active Substance: CARBIDOPA\LEVODOPA
     Indication: Parkinson^s disease
     Route: 050
     Dates: start: 20220928
  2. CARBIDOPA\LEVODOPA [Suspect]
     Active Substance: CARBIDOPA\LEVODOPA
     Dosage: MD: 5.0 ML, CRD: 2.0  ML/H, ED: 0.8 ML, FREQUENCY TEXT: 16H, LAST ADMIN DATE: 2024
     Route: 050
     Dates: start: 20240325
  3. CARBIDOPA\LEVODOPA [Suspect]
     Active Substance: CARBIDOPA\LEVODOPA
     Dosage: MD: 3.5 ML, CRD: 2.9  ML/H, ED: 1.0 ML, FREQUENCY: 16H
     Route: 050
     Dates: start: 20240701

REACTIONS (9)
  - Cerebrovascular accident [Unknown]
  - Hypersomnia [Not Recovered/Not Resolved]
  - Device issue [Not Recovered/Not Resolved]
  - Speech disorder [Not Recovered/Not Resolved]
  - Loss of personal independence in daily activities [Unknown]
  - Dysphagia [Not Recovered/Not Resolved]
  - General physical health deterioration [Not Recovered/Not Resolved]
  - Intellectual disability [Not Recovered/Not Resolved]
  - Parkinson^s disease [Not Recovered/Not Resolved]
